FAERS Safety Report 10943941 (Version 1)
Quarter: 2015Q1

REPORT INFORMATION
  Report Type: Spontaneous
  Country: FR (occurrence: FR)
  Receive Date: 20150323
  Receipt Date: 20150323
  Transmission Date: 20150721
  Serious: Yes (Hospitalization)
  Sender: FDA-Public Use
  Company Number: FR-ROCHE-1553968

PATIENT
  Age: 66 Year
  Sex: Male

DRUGS (8)
  1. BICNU [Suspect]
     Active Substance: CARMUSTINE
     Indication: B-CELL LYMPHOMA
     Route: 042
     Dates: start: 20041126, end: 20041201
  2. ENDOXAN [Concomitant]
     Active Substance: CYCLOPHOSPHAMIDE
     Indication: B-CELL LYMPHOMA
     Route: 041
     Dates: start: 20040723, end: 20040928
  3. CYTARABINE. [Suspect]
     Active Substance: CYTARABINE
     Indication: B-CELL LYMPHOMA
     Route: 065
     Dates: start: 20041126, end: 20041201
  4. DOXORUBICINE [Suspect]
     Active Substance: DOXORUBICIN
     Indication: B-CELL LYMPHOMA
     Route: 041
     Dates: start: 20040723, end: 20040928
  5. ETOPOSIDE. [Suspect]
     Active Substance: ETOPOSIDE
     Indication: B-CELL LYMPHOMA
     Route: 065
     Dates: start: 20041126, end: 20041201
  6. MABTHERA [Suspect]
     Active Substance: RITUXIMAB
     Indication: B-CELL LYMPHOMA
     Route: 041
     Dates: start: 20040927, end: 20050105
  7. MELPHALAN [Suspect]
     Active Substance: MELPHALAN
     Indication: B-CELL LYMPHOMA
     Route: 041
     Dates: start: 20041126, end: 20041201
  8. VINCRISTINE [Concomitant]
     Active Substance: VINCRISTINE
     Indication: B-CELL LYMPHOMA
     Route: 041
     Dates: start: 20040723, end: 20040928

REACTIONS (1)
  - Cardiomyopathy [Unknown]

NARRATIVE: CASE EVENT DATE: 20041217
